FAERS Safety Report 7903117-X (Version None)
Quarter: 2011Q4

REPORT INFORMATION
  Report Type: 
  Country: None (occurrence: None)
  Receive Date: 20111109
  Receipt Date: 20111031
  Transmission Date: 20120403
  Serious: Yes (Other)
  Sender: FDA-Public Use
  Company Number: JP-BRISTOL-MYERS SQUIBB COMPANY-15994510

PATIENT
  Age: 59 Year
  Sex: Male

DRUGS (7)
  1. FLUOROURACIL [Suspect]
     Indication: METASTASES TO LIVER
     Route: 042
  2. CETUXIMAB [Suspect]
     Indication: COLON CANCER METASTATIC
     Dosage: 400MG/M2 ONCE
     Route: 042
  3. LEUCOVORIN CALCIUM [Suspect]
     Indication: METASTASES TO LIVER
     Route: 042
  4. OXALIPLATIN [Suspect]
     Indication: COLON CANCER METASTATIC
     Route: 042
  5. CETUXIMAB [Suspect]
     Indication: METASTASES TO LIVER
     Dosage: 400MG/M2 ONCE
     Route: 042
  6. FLUOROURACIL [Suspect]
     Indication: COLON CANCER METASTATIC
     Route: 042
  7. LEUCOVORIN CALCIUM [Suspect]
     Indication: COLON CANCER METASTATIC
     Route: 042

REACTIONS (2)
  - SKIN TOXICITY [None]
  - NEUROPATHY PERIPHERAL [None]
